FAERS Safety Report 18076600 (Version 5)
Quarter: 2020Q4

REPORT INFORMATION
  Report Type: Spontaneous
  Country: US (occurrence: US)
  Receive Date: 20200727
  Receipt Date: 20201027
  Transmission Date: 20210113
  Serious: No
  Sender: FDA-Public Use
  Company Number: US-PFIZER INC-2020273403

PATIENT
  Age: 11 Year
  Sex: Female
  Weight: 42.64 kg

DRUGS (1)
  1. GENOTROPIN [Suspect]
     Active Substance: SOMATROPIN
     Indication: BLOOD GROWTH HORMONE
     Dosage: 1 MG, DAILY
     Dates: start: 202007

REACTIONS (8)
  - Drug dose omission by device [Unknown]
  - Intentional device misuse [Unknown]
  - Reaction to preservatives [Unknown]
  - Poor quality device used [Unknown]
  - Pain [Unknown]
  - Wrong technique in device usage process [Unknown]
  - Injection site vesicles [Unknown]
  - Device leakage [Unknown]

NARRATIVE: CASE EVENT DATE: 20200716
